FAERS Safety Report 14772954 (Version 1)
Quarter: 2018Q2

REPORT INFORMATION
  Report Type: Spontaneous
  Country: FR (occurrence: FR)
  Receive Date: 20180418
  Receipt Date: 20180418
  Transmission Date: 20180711
  Serious: Yes (Other)
  Sender: FDA-Public Use
  Company Number: FR-MERCK KGAA-2045918

PATIENT
  Age: 61 Year
  Sex: Female

DRUGS (1)
  1. NOVOTHYROX [Suspect]
     Active Substance: LEVOTHYROXINE SODIUM
     Indication: THYROIDECTOMY

REACTIONS (16)
  - Gait disturbance [None]
  - Muscle spasms [None]
  - Disturbance in attention [None]
  - Musculoskeletal pain [None]
  - Loss of personal independence in daily activities [None]
  - Fatigue [None]
  - Weight decreased [None]
  - Loss of libido [None]
  - Dizziness [None]
  - Affective disorder [None]
  - Somnolence [None]
  - Pain in extremity [None]
  - Headache [None]
  - Loss of consciousness [None]
  - Physical disability [None]
  - Hyperthyroidism [None]

NARRATIVE: CASE EVENT DATE: 201706
